FAERS Safety Report 25406594 (Version 1)
Quarter: 2025Q2

REPORT INFORMATION
  Report Type: Spontaneous
  Country: ES (occurrence: ES)
  Receive Date: 20250606
  Receipt Date: 20250606
  Transmission Date: 20250716
  Serious: Yes (Hospitalization, Other)
  Sender: BRISTOL-MYERS SQUIBB COMPANY
  Company Number: ES-Accord-357003

PATIENT
  Age: 63 Year
  Sex: Male
  Weight: 57.2 kg

DRUGS (37)
  1. PACLITAXEL [Suspect]
     Active Substance: PACLITAXEL
     Indication: Ductal adenocarcinoma of pancreas
     Dosage: DOSE GIVEN ON DAY 1, 8 AND 15
     Dates: start: 20230206, end: 20230206
  2. PACLITAXEL [Suspect]
     Active Substance: PACLITAXEL
     Dosage: DOSE GIVEN ON DAY 1, 8 AND 15
     Dates: start: 20230109, end: 20230109
  3. PACLITAXEL [Suspect]
     Active Substance: PACLITAXEL
     Dosage: DOSE GIVEN ON DAY 1, 8 AND 15
     Dates: start: 20230116, end: 20230116
  4. PACLITAXEL [Suspect]
     Active Substance: PACLITAXEL
     Dosage: DOSE GIVEN ON DAY 1, 8 AND 15
     Dates: start: 20230220, end: 20230220
  5. PACLITAXEL [Suspect]
     Active Substance: PACLITAXEL
     Dosage: DOSE GIVEN ON DAY 1, 8 AND 15
     Dates: start: 20230227, end: 20230227
  6. PACLITAXEL [Suspect]
     Active Substance: PACLITAXEL
     Dosage: DOSE GIVEN ON DAY 1, 8 AND 15
     Dates: start: 20230306, end: 20230306
  7. PACLITAXEL [Suspect]
     Active Substance: PACLITAXEL
     Dosage: DOSE GIVEN ON DAY 1, 8 AND 15
     Dates: start: 20230321, end: 20230321
  8. PACLITAXEL [Suspect]
     Active Substance: PACLITAXEL
     Dosage: DOSE GIVEN ON DAY 1, 8 AND 15
     Dates: start: 20230327, end: 20230327
  9. PACLITAXEL [Suspect]
     Active Substance: PACLITAXEL
     Dosage: DOSE GIVEN ON DAY 1, 8 AND 15
     Dates: start: 20230403, end: 20230403
  10. GEMCITABINE [Suspect]
     Active Substance: GEMCITABINE
     Indication: Ductal adenocarcinoma of pancreas
     Dosage: DOSE GIVEN ON DAY 1, 8 AND 15
     Dates: start: 20230206, end: 20230206
  11. GEMCITABINE [Suspect]
     Active Substance: GEMCITABINE
     Dosage: DOSE GIVEN ON DAY 1, 8 AND 15
     Dates: start: 20230109, end: 20230109
  12. GEMCITABINE [Suspect]
     Active Substance: GEMCITABINE
     Dosage: DOSE GIVEN ON DAY 1, 8 AND 15
     Dates: start: 20230116, end: 20230116
  13. GEMCITABINE [Suspect]
     Active Substance: GEMCITABINE
     Dosage: DOSE GIVEN ON DAY 1, 8 AND 15
     Dates: start: 20230220, end: 20230220
  14. GEMCITABINE [Suspect]
     Active Substance: GEMCITABINE
     Dosage: DOSE GIVEN ON DAY 1, 8 AND 15
     Dates: start: 20230227, end: 20230227
  15. GEMCITABINE [Suspect]
     Active Substance: GEMCITABINE
     Dosage: DOSE GIVEN ON DAY 1, 8 AND 15
     Dates: start: 20230306, end: 20230306
  16. GEMCITABINE [Suspect]
     Active Substance: GEMCITABINE
     Dosage: DOSE GIVEN ON DAY 1, 8 AND 15
     Dates: start: 20230321, end: 20230321
  17. GEMCITABINE [Suspect]
     Active Substance: GEMCITABINE
     Dosage: DOSE GIVEN ON DAY 1, 8 AND 15
     Dates: start: 20230327, end: 20230327
  18. GEMCITABINE [Suspect]
     Active Substance: GEMCITABINE
     Dosage: DOSE GIVEN ON DAY 1, 8 AND 15
     Dates: start: 20230403, end: 20230403
  19. ALBUMIN HUMAN [Concomitant]
     Active Substance: ALBUMIN HUMAN
     Indication: Generalised oedema
  20. BROMAZEPAM [Concomitant]
     Active Substance: BROMAZEPAM
     Indication: Insomnia
     Route: 048
     Dates: start: 202205
  21. CIPROFLOXACIN [Concomitant]
     Active Substance: CIPROFLOXACIN
     Indication: Pyrexia
  22. DOMPERIDONE [Concomitant]
     Active Substance: DOMPERIDONE
     Indication: Gastrointestinal disorder
     Route: 048
     Dates: start: 202212
  23. ARGININE ASPARTATE [Concomitant]
     Active Substance: ARGININE ASPARTATE
     Indication: Nutritional supplementation
     Route: 048
     Dates: start: 2013
  24. FILGRASTIM [Concomitant]
     Active Substance: FILGRASTIM
     Indication: Haematotoxicity
  25. FUROSEMIDE [Concomitant]
     Active Substance: FUROSEMIDE
     Indication: Oedema peripheral
     Route: 048
     Dates: start: 20230130
  26. FUROSEMIDE [Concomitant]
     Active Substance: FUROSEMIDE
     Indication: Generalised oedema
  27. BEMIPARIN SODIUM [Concomitant]
     Active Substance: BEMIPARIN SODIUM
     Indication: Thrombosis prophylaxis
     Route: 058
     Dates: start: 20230130
  28. IRON [Concomitant]
     Active Substance: IRON
     Indication: Anaemia
     Dates: start: 20230227
  29. LEVOSULPIRIDE [Concomitant]
     Active Substance: LEVOSULPIRIDE
     Indication: Abdominal distension
     Dosage: 3 IN 1 D
     Route: 048
     Dates: start: 202212
  30. LOPERAMIDE [Concomitant]
     Active Substance: LOPERAMIDE
     Indication: Diarrhoea
     Route: 048
     Dates: start: 202205
  31. OMEPRAZOLE [Concomitant]
     Active Substance: OMEPRAZOLE
     Indication: Prophylaxis
     Route: 048
     Dates: start: 202205
  32. OTILONIUM BROMIDE [Concomitant]
     Active Substance: OTILONIUM BROMIDE
     Indication: Abdominal distension
     Dosage: 3 IN 1 D
     Route: 048
     Dates: start: 202212
  33. PANCREATIN [Concomitant]
     Active Substance: PANCRELIPASE
     Indication: Dyspepsia
     Dosage: 3 IN 1 D
     Route: 048
     Dates: start: 20230130
  34. ACETAMINOPHEN [Concomitant]
     Active Substance: ACETAMINOPHEN
     Indication: Abdominal pain
     Route: 048
     Dates: start: 202205
  35. PLATELETS [Concomitant]
     Active Substance: HUMAN PLATELET, ALLOGENIC
     Indication: Haematotoxicity
  36. SPIRONOLACTONE [Concomitant]
     Active Substance: SPIRONOLACTONE
     Indication: Oedema peripheral
     Route: 048
     Dates: start: 20230130
  37. SPIRONOLACTONE [Concomitant]
     Active Substance: SPIRONOLACTONE
     Indication: Generalised oedema

REACTIONS (3)
  - Pyrexia [Recovered/Resolved]
  - Generalised oedema [Recovered/Resolved]
  - Haematotoxicity [Recovered/Resolved]

NARRATIVE: CASE EVENT DATE: 20230406
